FAERS Safety Report 14592219 (Version 1)
Quarter: 2018Q1

REPORT INFORMATION
  Report Type: Spontaneous
  Country: US (occurrence: US)
  Receive Date: 20180301
  Receipt Date: 20180301
  Transmission Date: 20180509
  Serious: No
  Sender: FDA-Public Use
  Company Number: None

PATIENT
  Age: 40 Year
  Sex: Female
  Weight: 53.1 kg

DRUGS (7)
  1. PROBIOTICS [Concomitant]
     Active Substance: PROBIOTICS NOS
  2. NEUTROGENA TRIPLE AGE REPAIR MOISTURIZER BROAD SPECTRUM SPF25 [Suspect]
     Active Substance: AVOBENZONE\HOMOSALATE\OCTISALATE\OCTOCRYLENE
     Indication: THERAPEUTIC SKIN CARE TOPICAL
     Dosage: ?          OTHER STRENGTH:OZ;QUANTITY:1.7 OUNCE(S);?
     Route: 062
     Dates: start: 20180226, end: 20180227
  3. MAGNESIUM [Concomitant]
     Active Substance: MAGNESIUM
  4. BABY ASPIRIN [Concomitant]
     Active Substance: ASPIRIN
  5. VITAMINS [Concomitant]
     Active Substance: VITAMINS
  6. ONE A DAY WOMEN^S VITAMIN [Concomitant]
  7. FOLGARD [Concomitant]

REACTIONS (1)
  - Hypersensitivity [None]

NARRATIVE: CASE EVENT DATE: 20180227
